FAERS Safety Report 8770226 (Version 2)
Quarter: 2012Q4

REPORT INFORMATION
  Report Type: 
  Country: US (occurrence: US)
  Receive Date: 20120906
  Receipt Date: 20121022
  Transmission Date: 20130627
  Serious: Yes (Other)
  Sender: FDA-Public Use
  Company Number: US-JNJFOC-20100803605

PATIENT
  Age: 57 None
  Sex: Female

DRUGS (12)
  1. LEVAQUIN [Suspect]
     Indication: SINOBRONCHITIS
     Route: 048
  2. LEVAQUIN [Suspect]
     Indication: SINOBRONCHITIS
     Route: 048
  3. LEVAQUIN [Suspect]
     Indication: GASTROENTERITIS
     Route: 048
  4. LEVAQUIN [Suspect]
     Indication: GASTROENTERITIS
     Route: 048
  5. LEVAQUIN [Suspect]
     Indication: PHARYNGITIS
     Route: 048
  6. LEVAQUIN [Suspect]
     Indication: PHARYNGITIS
     Route: 048
  7. LEVAQUIN [Suspect]
     Indication: URINARY TRACT INFECTION
     Route: 048
  8. LEVAQUIN [Suspect]
     Indication: URINARY TRACT INFECTION
     Route: 048
  9. LEVAQUIN [Suspect]
     Indication: SINUSITIS
     Route: 048
  10. LEVAQUIN [Suspect]
     Indication: SINUSITIS
     Route: 048
  11. LEVAQUIN [Suspect]
     Indication: BACTERIAL INFECTION
     Route: 048
  12. LEVAQUIN [Suspect]
     Indication: BACTERIAL INFECTION
     Route: 048

REACTIONS (3)
  - Rotator cuff syndrome [Recovering/Resolving]
  - Rotator cuff syndrome [Recovering/Resolving]
  - Tendon injury [Unknown]
